FAERS Safety Report 15841546 (Version 1)
Quarter: 2018Q4

REPORT INFORMATION
  Report Type: Spontaneous
  Country: US (occurrence: US)
  Receive Date: 20181222
  Receipt Date: 20181222
  Transmission Date: 20190205
  Serious: No
  Sender: FDA-Public Use
  Company Number: None

PATIENT
  Age: 27 Year
  Sex: Female

DRUGS (1)
  1. CAPECITABINE 500MG ROXANE [Suspect]
     Active Substance: CAPECITABINE
     Indication: BREAST CANCER FEMALE
     Dosage: ?          OTHER DOSE:2000MG AM2500MG PM;?
     Route: 048
     Dates: start: 20180907

REACTIONS (2)
  - Amnesia [None]
  - Dry skin [None]

NARRATIVE: CASE EVENT DATE: 20181201
